FAERS Safety Report 5880868-2 (Version None)
Quarter: 2008Q3

REPORT INFORMATION
  Report Type: 
  Country: None (occurrence: None)
  Receive Date: 20080912
  Receipt Date: 20080611
  Transmission Date: 20090109
  Serious: No
  Sender: FDA-Public Use
  Company Number: US-ABBOTT-08P-163-0456741-00

PATIENT
  Sex: Female
  Weight: 71.278 kg

DRUGS (9)
  1. HUMIRA [Suspect]
     Indication: RHEUMATOID ARTHRITIS
     Route: 058
     Dates: start: 20080327, end: 20080401
  2. HUMIRA [Suspect]
     Route: 058
     Dates: start: 20080501
  3. MAVIC [Concomitant]
     Indication: HYPERTENSION
     Route: 048
     Dates: start: 20040101
  4. LEFLUNOMIDE [Concomitant]
     Indication: RHEUMATOID ARTHRITIS
     Route: 048
     Dates: start: 20040101
  5. PAROXETINE HCL [Concomitant]
     Indication: ANXIETY
     Route: 048
     Dates: start: 20070101
  6. FISH OIL [Concomitant]
     Indication: MINERAL SUPPLEMENTATION
     Route: 048
     Dates: start: 20061201
  7. LINUM USITATISSIMUM SEED OIL [Concomitant]
     Indication: MEDICAL DIET
     Route: 048
     Dates: start: 20061001
  8. CALCIUM [Concomitant]
     Indication: MINERAL SUPPLEMENTATION
     Route: 048
  9. FOLIC ACID [Concomitant]
     Indication: VITAMIN SUPPLEMENTATION
     Route: 048

REACTIONS (6)
  - ACCIDENTAL EXPOSURE [None]
  - DRUG DOSE OMISSION [None]
  - HEADACHE [None]
  - HOT FLUSH [None]
  - INJECTION SITE IRRITATION [None]
  - SINUSITIS [None]
